FAERS Safety Report 14994425 (Version 1)
Quarter: 2018Q2

REPORT INFORMATION
  Report Type: Spontaneous
  Country: PR (occurrence: PR)
  Receive Date: 20180521
  Receipt Date: 20180521
  Transmission Date: 20180711
  Serious: No
  Sender: FDA-Public Use
  Company Number: None

PATIENT
  Age: 28 Year
  Sex: Female
  Weight: 49.5 kg

DRUGS (1)
  1. EUCRISA [Suspect]
     Active Substance: CRISABOROLE
     Indication: DERMATITIS ATOPIC
     Dosage: ?          QUANTITY:60 GRAMS;?
     Route: 062
     Dates: start: 20180518, end: 20180518

REACTIONS (1)
  - Burning sensation [None]

NARRATIVE: CASE EVENT DATE: 20180518
